FAERS Safety Report 4740936-5 (Version None)
Quarter: 2005Q3

REPORT INFORMATION
  Report Type: 
  Country: None (occurrence: None)
  Receive Date: 20050810
  Receipt Date: 20050802
  Transmission Date: 20060218
  Serious: Yes (Hospitalization)
  Sender: FDA-Public Use
  Company Number: US-KINGPHARMUSA00001-K200501032

PATIENT
  Age: 16 Year
  Sex: Female
  Weight: 70 kg

DRUGS (1)
  1. TAPAZOLE [Suspect]
     Indication: BASEDOW'S DISEASE
     Route: 048
     Dates: start: 20030101, end: 20050501

REACTIONS (11)
  - C-REACTIVE PROTEIN INCREASED [None]
  - CHEST PAIN [None]
  - GLOMERULONEPHRITIS [None]
  - HAEMATURIA [None]
  - HAEMOGLOBINURIA [None]
  - HYPERTENSION [None]
  - HYPOTHYROIDISM [None]
  - OEDEMA PERIPHERAL [None]
  - PLEURAL EFFUSION [None]
  - PROTEINURIA [None]
  - RED BLOOD CELL SEDIMENTATION RATE INCREASED [None]
